FAERS Safety Report 6550778-6 (Version None)
Quarter: 2010Q1

REPORT INFORMATION
  Report Type: 
  Country: None (occurrence: None)
  Receive Date: 20100125
  Receipt Date: 20100120
  Transmission Date: 20100710
  Serious: Yes (Death)
  Sender: FDA-Public Use
  Company Number: PHEH2009US15519

PATIENT
  Sex: Male
  Weight: 81.81 kg

DRUGS (2)
  1. AFINITOR [Suspect]
     Indication: PROSTATE CANCER
     Dosage: 10 MG, QD
     Dates: start: 20090508, end: 20090911
  2. RADIATION TREATMENT [Suspect]

REACTIONS (2)
  - MALAISE [None]
  - RENAL CANCER [None]
